FAERS Safety Report 19176569 (Version 9)
Quarter: 2021Q2

REPORT INFORMATION
  Report Type: Report from Study
  Country: None (occurrence: ES)
  Receive Date: 20210423
  Receipt Date: 20210614
  Transmission Date: 20210717
  Serious: Yes (Hospitalization, Other)
  Sender: FDA-Public Use
  Company Number: ES-ABBVIE-21K-144-3867851-00

PATIENT
  Age: 64 Year
  Sex: Male
  Weight: 99 kg

DRUGS (25)
  1. DULOXETINE. [Concomitant]
     Active Substance: DULOXETINE
     Indication: PRODUCT USED FOR UNKNOWN INDICATION
  2. MOTILIUM [Concomitant]
     Active Substance: DOMPERIDONE
     Indication: PRODUCT USED FOR UNKNOWN INDICATION
  3. LEVODOPA [Concomitant]
     Active Substance: LEVODOPA
     Indication: PRODUCT USED FOR UNKNOWN INDICATION
     Route: 048
     Dates: start: 20210604
  4. DUODOPA [Suspect]
     Active Substance: CARBIDOPA\LEVODOPA
     Indication: PARKINSON^S DISEASE
     Dosage: MORNING 9+ 3ML, CONTINUES 3 ML / H AND EXTRA 4 ML
     Route: 050
     Dates: start: 20180627, end: 20210421
  5. CARVEDILOL. [Concomitant]
     Active Substance: CARVEDILOL
     Indication: PRODUCT USED FOR UNKNOWN INDICATION
     Dosage: 6.25
     Dates: end: 202104
  6. ALPRAZOLAM. [Concomitant]
     Active Substance: ALPRAZOLAM
     Indication: PRODUCT USED FOR UNKNOWN INDICATION
  7. NEUPRO [Concomitant]
     Active Substance: ROTIGOTINE
     Indication: PRODUCT USED FOR UNKNOWN INDICATION
     Dosage: NOCTURNAL
     Route: 062
  8. SINEMET [Concomitant]
     Active Substance: CARBIDOPA\LEVODOPA
     Dosage: ENTERAL GASTRIC, 250 MG
     Route: 048
     Dates: start: 202105, end: 20210525
  9. OMEPRAZOL [Concomitant]
     Active Substance: OMEPRAZOLE
     Indication: PRODUCT USED FOR UNKNOWN INDICATION
     Route: 048
     Dates: end: 202104
  10. OMEPRAZOL [Concomitant]
     Active Substance: OMEPRAZOLE
     Route: 042
     Dates: start: 20210428
  11. SIMVASTATIN. [Concomitant]
     Active Substance: SIMVASTATIN
     Indication: PRODUCT USED FOR UNKNOWN INDICATION
     Route: 048
     Dates: end: 202104
  12. TRAZODONE [Concomitant]
     Active Substance: TRAZODONE HYDROCHLORIDE
     Indication: PRODUCT USED FOR UNKNOWN INDICATION
  13. DIGOXIN. [Concomitant]
     Active Substance: DIGOXIN
     Indication: PRODUCT USED FOR UNKNOWN INDICATION
  14. VERAPAMIL [Concomitant]
     Active Substance: VERAPAMIL HYDROCHLORIDE
     Indication: PRODUCT USED FOR UNKNOWN INDICATION
  15. ASTRAZENECA COVID?19 VACCINE [Suspect]
     Active Substance: AZD-1222
     Indication: COVID-19 IMMUNISATION
     Dosage: FIRST DOSE, ASTRA ZENECA
     Route: 030
     Dates: start: 20210410, end: 20210410
  16. SINTROM [Concomitant]
     Active Substance: ACENOCOUMAROL
     Indication: ANTICOAGULANT THERAPY
     Route: 048
  17. ROTIGOTINE [Concomitant]
     Active Substance: ROTIGOTINE
     Indication: PRODUCT USED FOR UNKNOWN INDICATION
  18. QUETIAPINE. [Concomitant]
     Active Substance: QUETIAPINE
     Indication: PRODUCT USED FOR UNKNOWN INDICATION
     Route: 048
     Dates: start: 202105
  19. SINEMET [Concomitant]
     Active Substance: CARBIDOPA\LEVODOPA
     Indication: PRODUCT USED FOR UNKNOWN INDICATION
     Dosage: SINEMET RETARD?1 IN 24 HOURS NOCTURNAL,
     Route: 048
     Dates: end: 202104
  20. FUROSEMIDE. [Concomitant]
     Active Substance: FUROSEMIDE
     Indication: PRODUCT USED FOR UNKNOWN INDICATION
     Route: 048
     Dates: end: 202104
  21. TRANXILIUM [Concomitant]
     Active Substance: CLORAZEPATE DIPOTASSIUM
     Indication: PRODUCT USED FOR UNKNOWN INDICATION
     Route: 048
     Dates: end: 202104
  22. NORADRENALINE [Concomitant]
     Active Substance: NOREPINEPHRINE
     Indication: PRODUCT USED FOR UNKNOWN INDICATION
  23. DUODOPA [Suspect]
     Active Substance: CARBIDOPA\LEVODOPA
     Dosage: MORNING DOSE 12 ML, CONTINUOUS DOSE OF 3 ML/H AND EXTRA DOSE OF 4 ML
     Route: 050
     Dates: start: 20210525, end: 2021
  24. DEPRAX [Concomitant]
     Indication: PRODUCT USED FOR UNKNOWN INDICATION
     Route: 048
     Dates: end: 202104
  25. GLIMEPIRIDE. [Concomitant]
     Active Substance: GLIMEPIRIDE
     Indication: PRODUCT USED FOR UNKNOWN INDICATION

REACTIONS (53)
  - Abdominal pain [Recovered/Resolved]
  - Diarrhoea [Unknown]
  - Off label use [Not Recovered/Not Resolved]
  - Incorrect route of product administration [Unknown]
  - Upper gastrointestinal haemorrhage [Recovered/Resolved]
  - Atrial fibrillation [Unknown]
  - Haemodynamic instability [Unknown]
  - Faeces discoloured [Unknown]
  - Pallor [Unknown]
  - C-reactive protein increased [Unknown]
  - Device dislocation [Unknown]
  - Fatigue [Recovering/Resolving]
  - Duodenal ulcer [Recovered/Resolved]
  - On and off phenomenon [Recovering/Resolving]
  - Lactic acidosis [Unknown]
  - Lipoatrophy [Unknown]
  - Loss of personal independence in daily activities [Recovering/Resolving]
  - Heart rate increased [Recovered/Resolved]
  - Pneumonia [Recovered/Resolved]
  - Abdominal pain lower [Unknown]
  - Abdominal distension [Unknown]
  - Medical device site haemorrhage [Unknown]
  - Arterial haemorrhage [Unknown]
  - Decubitus ulcer [Unknown]
  - Hyperhidrosis [Unknown]
  - Heart rate abnormal [Unknown]
  - Aspiration [Not Recovered/Not Resolved]
  - Device placement issue [Not Recovered/Not Resolved]
  - Device occlusion [Recovered/Resolved]
  - Hypotension [Unknown]
  - Oliguria [Unknown]
  - Therapeutic product effect incomplete [Unknown]
  - Unevaluable event [Recovered/Resolved]
  - Sleep apnoea syndrome [Unknown]
  - Constipation [Recovered/Resolved]
  - Duodenal obstruction [Recovered/Resolved]
  - Blood pressure decreased [Unknown]
  - Dry skin [Unknown]
  - Vomiting [Recovered/Resolved]
  - Gastric dilatation [Unknown]
  - Renal impairment [Unknown]
  - Shock haemorrhagic [Unknown]
  - Duodenal perforation [Unknown]
  - Muscle atrophy [Unknown]
  - Hyperhidrosis [Recovered/Resolved]
  - Sepsis [Recovering/Resolving]
  - Bezoar [Recovered/Resolved]
  - Gastrointestinal obstruction [Unknown]
  - Discoloured vomit [Unknown]
  - Melaena [Unknown]
  - Upper gastrointestinal haemorrhage [Unknown]
  - Procalcitonin increased [Unknown]
  - Agitation [Recovered/Resolved]

NARRATIVE: CASE EVENT DATE: 20210410
